FAERS Safety Report 8303854-1 (Version None)
Quarter: 2012Q2

REPORT INFORMATION
  Report Type: 
  Country: None (occurrence: None)
  Receive Date: 20120423
  Receipt Date: 20120416
  Transmission Date: 20120825
  Serious: Yes (Hospitalization)
  Sender: FDA-Public Use
  Company Number: PHHY2012FR033047

PATIENT
  Sex: Female

DRUGS (5)
  1. DEPAKENE [Concomitant]
     Dosage: 1.5 DF, QD
  2. CLOZAPINE [Suspect]
     Dosage: 37.5 MG, UNK
     Dates: start: 20120312
  3. LITHIUM CARBONATE [Concomitant]
     Indication: BIPOLAR DISORDER
     Dosage: 400 MG, QD
     Dates: start: 20120220, end: 20120306
  4. DEPAKENE [Concomitant]
     Indication: BIPOLAR DISORDER
     Dosage: 4 DF, QD
  5. CLOZAPINE [Suspect]
     Indication: BIPOLAR DISORDER
     Dosage: UNK UKN, UNK
     Dates: end: 20120220

REACTIONS (2)
  - TREMOR [None]
  - BIPOLAR DISORDER [None]
